FAERS Safety Report 13363563 (Version 3)
Quarter: 2017Q2

REPORT INFORMATION
  Report Type: Spontaneous
  Country: US (occurrence: US)
  Receive Date: 20170323
  Receipt Date: 20170412
  Transmission Date: 20170830
  Serious: Yes (Other)
  Sender: FDA-Public Use
  Company Number: US-BAYER-2017-054695

PATIENT
  Age: 21 Year
  Sex: Female
  Weight: 100.23 kg

DRUGS (2)
  1. SKYLA [Suspect]
     Active Substance: LEVONORGESTREL
     Indication: CONTRACEPTION
     Dosage: 14 MCG/24HR, CONT
     Route: 015
     Dates: start: 20140207, end: 20170112
  2. SKYLA [Suspect]
     Active Substance: LEVONORGESTREL
     Indication: CONTRACEPTION
     Dosage: 14 MCG/24HR, CONT
     Route: 015
     Dates: start: 20170112, end: 2017

REACTIONS (8)
  - Haemorrhage in pregnancy [None]
  - Procedural haemorrhage [None]
  - Muscle spasms [None]
  - Pelvic pain [None]
  - Pain [None]
  - Drug ineffective [None]
  - Medication error [None]
  - Pregnancy with contraceptive device [None]

NARRATIVE: CASE EVENT DATE: 2016
